FAERS Safety Report 6035203-6 (Version None)
Quarter: 2009Q1

REPORT INFORMATION
  Report Type: 
  Country: None (occurrence: None)
  Receive Date: 20090109
  Receipt Date: 20081222
  Transmission Date: 20090719
  Serious: Yes (Other)
  Sender: FDA-Public Use
  Company Number: 2009JP000078

PATIENT
  Age: 21 Year
  Sex: Female

DRUGS (5)
  1. PROTOPIC [Suspect]
     Indication: DERMATITIS ATOPIC
     Dosage: 0.1 %, TOPICAL
     Route: 061
     Dates: end: 20061205
  2. PROTOPIC [Suspect]
     Indication: DERMATITIS ATOPIC
     Dosage: 0.1 %, TOPICAL
     Route: 061
     Dates: end: 20070717
  3. PROTOPIC [Suspect]
     Indication: DERMATITIS ATOPIC
     Dosage: 0.1 %, TOPICAL
     Route: 061
     Dates: end: 20080207
  4. PROTOPIC [Suspect]
     Indication: DERMATITIS ATOPIC
     Dosage: 0.1 %, TOPICAL
     Route: 061
     Dates: end: 20080609
  5. LIDOMEX (PREDNISOLONE VALEROACETATE) LOTION [Concomitant]

REACTIONS (2)
  - KAPOSI'S VARICELLIFORM ERUPTION [None]
  - MASTITIS [None]
